FAERS Safety Report 18506674 (Version 1)
Quarter: 2020Q4

REPORT INFORMATION
  Report Type: Spontaneous
  Country: US (occurrence: US)
  Receive Date: 20201116
  Receipt Date: 20201116
  Transmission Date: 20210114
  Serious: Yes (Other)
  Sender: FDA-Public Use
  Company Number: US-PFIZER INC-2020445234

PATIENT
  Age: 58 Year
  Sex: Female
  Weight: 86.18 kg

DRUGS (3)
  1. GABAPENTIN. [Suspect]
     Active Substance: GABAPENTIN
     Indication: RESTLESS LEGS SYNDROME
     Dosage: 900 MG, DAILY (SHE NORMALLY TOOK 1 300MG CAPSULE IN THE MORNING AND 2 300MG CAPSULES AT NIGHT)
     Dates: start: 2005
  2. GABAPENTIN. [Suspect]
     Active Substance: GABAPENTIN
     Dosage: 300 MG, DAILY (THE ONE 300MG CAPSULE IN THE MORNING ONLY, WITHOUT THE TWO 300MG CAPSULES AT NIGHT )
  3. GABAPENTIN. [Suspect]
     Active Substance: GABAPENTIN
     Dosage: 900 MG, DAILY (THREE 300MG CAPSULES AT NIGHT)

REACTIONS (8)
  - Drug effective for unapproved indication [Unknown]
  - Therapeutic response unexpected [Unknown]
  - Off label use [Unknown]
  - Neuropathy peripheral [Unknown]
  - Intentional dose omission [Unknown]
  - Intentional product misuse [Unknown]
  - Somnolence [Unknown]
  - Product use in unapproved indication [Unknown]
